FAERS Safety Report 15290133 (Version 2)
Quarter: 2024Q2

REPORT INFORMATION
  Report Type: Report from Study
  Country: CA (occurrence: CA)
  Receive Date: 20180817
  Receipt Date: 20240503
  Transmission Date: 20240716
  Serious: Yes (Other)
  Sender: FDA-Public Use
  Company Number: CA-JNJFOC-20180810973

PATIENT
  Age: 51 Year
  Sex: Male
  Weight: 63 kg

DRUGS (4)
  1. TREMFYA [Suspect]
     Active Substance: GUSELKUMAB
     Indication: Psoriasis
     Dosage: STRENGTH = 100 MG
     Route: 058
     Dates: start: 20170915
  2. GABAPENTIN [Concomitant]
     Active Substance: GABAPENTIN
     Indication: Pain
     Dosage: STRENGTH = 400 MG
     Route: 048
  3. CELEXA [Concomitant]
     Active Substance: CITALOPRAM HYDROBROMIDE
     Indication: Depression
     Dosage: STRENGTH = 20 MG
     Route: 048
  4. IBUPROFEN [Concomitant]
     Active Substance: IBUPROFEN
     Indication: Tendonitis
     Dosage: STRENGTH = 300 MG
     Route: 048

REACTIONS (1)
  - Rectal abscess [Recovering/Resolving]

NARRATIVE: CASE EVENT DATE: 20180701
